FAERS Safety Report 12369108 (Version 1)
Quarter: 2016Q2

REPORT INFORMATION
  Report Type: Spontaneous
  Country: FR (occurrence: FR)
  Receive Date: 20160513
  Receipt Date: 20160513
  Transmission Date: 20160815
  Serious: Yes (Hospitalization)
  Sender: FDA-Public Use
  Company Number: FR-AUROBINDO-AUR-APL-2016-05731

PATIENT
  Age: 57 Year
  Sex: Female

DRUGS (1)
  1. AMOXICILLIN ARROW [Suspect]
     Active Substance: AMOXICILLIN
     Indication: PYELONEPHRITIS
     Dosage: 2 G, 3 TIMES A DAY
     Route: 048
     Dates: start: 20160205, end: 20160208

REACTIONS (2)
  - Pruritus [Recovered/Resolved]
  - Erythema [Recovered/Resolved]

NARRATIVE: CASE EVENT DATE: 20160208
